FAERS Safety Report 15647560 (Version 3)
Quarter: 2018Q4

REPORT INFORMATION
  Report Type: Spontaneous
  Country: US (occurrence: US)
  Receive Date: 20181122
  Receipt Date: 20181227
  Transmission Date: 20190205
  Serious: No
  Sender: FDA-Public Use
  Company Number: US-SA-2018SA317324

PATIENT
  Age: 80 Year
  Sex: Female

DRUGS (1)
  1. LANTUS SOLOSTAR [Suspect]
     Active Substance: INSULIN GLARGINE
     Indication: TYPE 2 DIABETES MELLITUS
     Dosage: 28 IU, ONCE EVERY NIGHT
     Route: 065
     Dates: start: 20171111

REACTIONS (6)
  - Appetite disorder [Unknown]
  - Headache [Unknown]
  - Device defective [Unknown]
  - Discomfort [Unknown]
  - Product dose omission [Unknown]
  - Product storage error [Unknown]
